FAERS Safety Report 25932014 (Version 2)
Quarter: 2025Q4

REPORT INFORMATION
  Report Type: Spontaneous
  Country: EU (occurrence: EU)
  Receive Date: 20251016
  Receipt Date: 20251031
  Transmission Date: 20260119
  Serious: No
  Sender: EMD SERONO INC
  Company Number: None

PATIENT
  Age: 32 Year
  Sex: Male

DRUGS (2)
  1. MAVENCLAD [Suspect]
     Active Substance: CLADRIBINE
     Indication: Multiple sclerosis
     Dosage: YEAR ONE THERAPY
     Dates: start: 202108, end: 202209
  2. MAVENCLAD [Suspect]
     Active Substance: CLADRIBINE
     Dosage: YEAR TWO THERAPY

REACTIONS (2)
  - Thyrotoxic crisis [Not Recovered/Not Resolved]
  - Hyperthyroidism [Not Recovered/Not Resolved]

NARRATIVE: CASE EVENT DATE: 20250401
